FAERS Safety Report 23260520 (Version 1)
Quarter: 2023Q4

REPORT INFORMATION
  Report Type: Spontaneous
  Country: US (occurrence: US)
  Receive Date: 20231205
  Receipt Date: 20231205
  Transmission Date: 20240110
  Serious: Yes (Life-Threatening, Hospitalization, Other)
  Sender: FDA-Public Use
  Company Number: US-HETERO-HET2023US03428

PATIENT
  Age: 87 Year
  Sex: Male

DRUGS (2)
  1. VALACYCLOVIR [Suspect]
     Active Substance: VALACYCLOVIR HYDROCHLORIDE
     Indication: Herpes zoster
     Dosage: 1 GRAM, TID
     Route: 065
  2. VALACYCLOVIR [Suspect]
     Active Substance: VALACYCLOVIR HYDROCHLORIDE
     Dosage: CUMULATIVE DOSE (3 GRAM)
     Route: 065

REACTIONS (2)
  - Neurotoxicity [Recovered/Resolved]
  - Drug metabolite level high [Recovered/Resolved]
